FAERS Safety Report 17246733 (Version 2)
Quarter: 2022Q2

REPORT INFORMATION
  Report Type: Spontaneous
  Country: US (occurrence: US)
  Receive Date: 20200108
  Receipt Date: 20220513
  Transmission Date: 20220721
  Serious: No
  Sender: FDA-Public Use
  Company Number: US-PFIZER INC-2020003717

PATIENT
  Sex: Female

DRUGS (1)
  1. GLUCOTROL [Suspect]
     Active Substance: GLIPIZIDE
     Dosage: UNK
     Dates: end: 2019

REACTIONS (1)
  - Nasopharyngitis [Unknown]
